FAERS Safety Report 12944591 (Version 1)
Quarter: 2016Q4

REPORT INFORMATION
  Report Type: Spontaneous
  Country: US (occurrence: US)
  Receive Date: 20161116
  Receipt Date: 20161116
  Transmission Date: 20170207
  Serious: No
  Sender: FDA-Public Use
  Company Number: US-JNJFOC-20161009978

PATIENT
  Age: 74 Year
  Sex: Female
  Weight: 54.89 kg

DRUGS (20)
  1. WOMENS ROGAINE [Suspect]
     Active Substance: MINOXIDIL
     Indication: ALOPECIA
     Route: 061
  2. HYDROCODONE BITARTRATE AND ACETAMINOPHEN [Concomitant]
     Active Substance: ACETAMINOPHEN\HYDROCODONE BITARTRATE
     Indication: PAIN
     Dosage: 5/325MG, 2 TABS DAIL,??7.5/750MG AS NEEDED
     Route: 065
  3. VITAMIN C [Concomitant]
     Active Substance: ASCORBIC ACID
     Indication: NUTRITIONAL SUPPLEMENTATION
     Route: 065
  4. PROLIA [Concomitant]
     Active Substance: DENOSUMAB
     Indication: OSTEOPENIA
     Route: 065
  5. WOMENS ROGAINE [Suspect]
     Active Substance: MINOXIDIL
     Route: 061
  6. LEVOTHYROXINE. [Concomitant]
     Active Substance: LEVOTHYROXINE
     Indication: HYPOTHYROIDISM
     Route: 065
  7. GABAPENTIN. [Concomitant]
     Active Substance: GABAPENTIN
     Indication: TRIGEMINAL NEURALGIA
     Route: 065
  8. NEXIUM [Concomitant]
     Active Substance: ESOMEPRAZOLE MAGNESIUM
     Indication: DYSPEPSIA
     Route: 065
  9. PREDNISONE. [Concomitant]
     Active Substance: PREDNISONE
     Indication: TRIGEMINAL NEURALGIA
     Dosage: 10MG AS NEEDED
     Route: 065
  10. TRIAMTERENE AND HYDROCHLOROTHIAZIDE [Concomitant]
     Active Substance: HYDROCHLOROTHIAZIDE\TRIAMTERENE
     Indication: DIZZINESS
     Route: 065
  11. VIACTIV [Concomitant]
     Active Substance: CALCIUM\VITAMIN D\VITAMIN K5
     Indication: PRODUCT USED FOR UNKNOWN INDICATION
     Route: 065
  12. SERTRALINE HCL [Concomitant]
     Active Substance: SERTRALINE HYDROCHLORIDE
     Indication: PRODUCT USED FOR UNKNOWN INDICATION
     Route: 065
  13. AMPHETAMINE [Concomitant]
     Active Substance: AMPHETAMINE
     Indication: SYNCOPE
     Route: 065
  14. NAPROXEN. [Concomitant]
     Active Substance: NAPROXEN
     Indication: BACK PAIN
     Route: 065
  15. NAPROXEN. [Concomitant]
     Active Substance: NAPROXEN
     Indication: TRIGEMINAL NEURALGIA
     Route: 065
  16. AMITRIPTYLINE [Concomitant]
     Active Substance: AMITRIPTYLINE
     Indication: PRODUCT USED FOR UNKNOWN INDICATION
     Route: 065
  17. MUCINEX D [Concomitant]
     Active Substance: GUAIFENESIN\PSEUDOEPHEDRINE HYDROCHLORIDE
     Indication: TRIGEMINAL NEURALGIA
     Dosage: 1 PILL
     Route: 065
  18. CENTRUM SILVER [Concomitant]
     Active Substance: MINERALS\VITAMINS
     Indication: NUTRITIONAL SUPPLEMENTATION
     Route: 065
  19. KLOR-CON [Concomitant]
     Active Substance: POTASSIUM CHLORIDE
     Indication: NUTRITIONAL SUPPLEMENTATION
     Route: 065
  20. EQUATE STOOL SOFTENER [Concomitant]
     Active Substance: CASANTHRANOL\DOCUSATE SODIUM
     Indication: GASTROINTESTINAL DISORDER
     Route: 065

REACTIONS (4)
  - Therapeutic response unexpected [Unknown]
  - Intentional product misuse [Unknown]
  - Alopecia [Not Recovered/Not Resolved]
  - Product use issue [Unknown]
